FAERS Safety Report 4393975-0 (Version None)
Quarter: 2004Q3

REPORT INFORMATION
  Report Type: 
  Country: None (occurrence: None)
  Receive Date: 20040702
  Receipt Date: 20040617
  Transmission Date: 20050211
  Serious: Yes (Disabling)
  Sender: FDA-Public Use
  Company Number: 200404142

PATIENT
  Age: 65 Year
  Sex: Male

DRUGS (2)
  1. BOTOX [Suspect]
     Indication: MUSCLE SPASMS
     Dosage: 100 UNITS PRN IM
     Route: 030
     Dates: start: 20040406, end: 20040406
  2. INTRATHECAL OPIOID [Concomitant]

REACTIONS (6)
  - BACK PAIN [None]
  - BURNING SENSATION [None]
  - FEELING ABNORMAL [None]
  - IMPAIRED WORK ABILITY [None]
  - INTERVERTEBRAL DISC DISORDER [None]
  - PAIN EXACERBATED [None]
